FAERS Safety Report 10484105 (Version 1)
Quarter: 2014Q3

REPORT INFORMATION
  Report Type: Spontaneous
  Country: US (occurrence: None)
  Receive Date: 20140926
  Receipt Date: 20140926
  Transmission Date: 20150326
  Serious: Yes (Other)
  Sender: FDA-Public Use
  Company Number: 2014HINLIT0859

PATIENT
  Age: 48 Year
  Sex: Female

DRUGS (8)
  1. FORMOTEROL [Concomitant]
     Active Substance: FORMOTEROL
  2. RALTEGRAVIR [Concomitant]
     Active Substance: RALTEGRAVIR
  3. DARUNAVI [Suspect]
     Active Substance: DARUNAVIR
     Indication: HIV INFECTION
  4. RITONAVIR (RITONAVIR) [Suspect]
     Active Substance: RITONAVIR
     Indication: HIV INFECTION
  5. EMTRICITABINE (EMTRICITABINE) UNKNOWN [Suspect]
     Active Substance: EMTRICITABINE
     Indication: HIV INFECTION
  6. BUDESONIDE (BUDESONIDE) [Suspect]
     Active Substance: BUDESONIDE
     Indication: PRODUCT USED FOR UNKNOWN INDICATION
  7. MONTELUKAST [Concomitant]
     Active Substance: MONTELUKAST SODIUM
  8. EFAVIRENZ [Suspect]
     Active Substance: EFAVIRENZ
     Indication: HIV INFECTION

REACTIONS (2)
  - Drug interaction [None]
  - Cushing^s syndrome [None]
